FAERS Safety Report 8428300-9 (Version None)
Quarter: 2012Q2

REPORT INFORMATION
  Report Type: 
  Country: None (occurrence: None)
  Receive Date: 20120611
  Receipt Date: 20120607
  Transmission Date: 20120825
  Serious: Yes (Other)
  Sender: FDA-Public Use
  Company Number: CH-MERCK-1206USA01287

PATIENT
  Age: 84 Year
  Sex: Male

DRUGS (16)
  1. MYCOSTATIN [Concomitant]
     Route: 048
     Dates: start: 20120215, end: 20120220
  2. ROCEPHIN [Suspect]
     Indication: BRONCHOPNEUMONIA
     Route: 042
     Dates: start: 20120126, end: 20120203
  3. CALCIPARINE [Concomitant]
     Route: 058
     Dates: start: 20120114, end: 20120306
  4. OXAZEPAM [Concomitant]
     Route: 048
     Dates: start: 20120221
  5. BETASERC [Suspect]
     Route: 048
     Dates: start: 20120202, end: 20120220
  6. NEXIUM [Suspect]
     Route: 048
     Dates: start: 20120213, end: 20120301
  7. HALDOL [Concomitant]
     Route: 048
     Dates: start: 20120216, end: 20120227
  8. ZOLOFT [Concomitant]
     Route: 048
     Dates: start: 20120330
  9. SINGULAIR [Suspect]
     Route: 048
     Dates: start: 20120210, end: 20120217
  10. FERINJECT [Suspect]
     Route: 042
     Dates: start: 20120213, end: 20120227
  11. CALCIPARINE [Concomitant]
     Route: 058
     Dates: start: 20120405
  12. ASPIRIN [Concomitant]
     Route: 048
  13. AMLODIPIN ACTAVIS (AMLODIPINE BESYLATE) [Concomitant]
     Route: 048
     Dates: start: 20120123, end: 20120405
  14. ZOLOFT [Concomitant]
     Route: 048
     Dates: start: 20120213, end: 20120309
  15. ESIDRIX [Concomitant]
     Route: 048
     Dates: start: 20120203
  16. ACETAMINOPHEN [Concomitant]
     Route: 048
     Dates: start: 20120114

REACTIONS (3)
  - CHOLESTATIC LIVER INJURY [None]
  - BLOOD ALKALINE PHOSPHATASE INCREASED [None]
  - GAMMA-GLUTAMYLTRANSFERASE INCREASED [None]
